FAERS Safety Report 12833860 (Version 4)
Quarter: 2016Q4

REPORT INFORMATION
  Report Type: Report from Study
  Country: None (occurrence: CA)
  Receive Date: 20161010
  Receipt Date: 20161115
  Transmission Date: 20170207
  Serious: Yes (Hospitalization, Other)
  Sender: FDA-Public Use
  Company Number: CA-ABBVIE-16K-028-1745403-00

PATIENT
  Sex: Male

DRUGS (2)
  1. HUMIRA [Suspect]
     Active Substance: ADALIMUMAB
     Indication: CROHN^S DISEASE
     Route: 058
     Dates: start: 20160822, end: 201608
  2. PREDNISONE. [Concomitant]
     Active Substance: PREDNISONE
     Indication: PRODUCT USED FOR UNKNOWN INDICATION

REACTIONS (5)
  - Malaise [Recovering/Resolving]
  - Intestinal perforation [Recovered/Resolved]
  - Fluid intake reduced [Recovering/Resolving]
  - Diverticulitis [Unknown]
  - Hypophagia [Recovering/Resolving]

NARRATIVE: CASE EVENT DATE: 2016
